FAERS Safety Report 25154344 (Version 3)
Quarter: 2025Q2

REPORT INFORMATION
  Report Type: Spontaneous
  Country: CA (occurrence: CA)
  Receive Date: 20250403
  Receipt Date: 20250527
  Transmission Date: 20250716
  Serious: Yes (Hospitalization, Other)
  Sender: CSL BEHRING
  Company Number: CA-BEH-2025200370

PATIENT
  Sex: Female
  Weight: 39 kg

DRUGS (8)
  1. ALBUREX [Suspect]
     Active Substance: ALBUMIN HUMAN
     Indication: Kabuki make-up syndrome
     Route: 065
     Dates: start: 20250320, end: 20250320
  2. ALBUREX [Suspect]
     Active Substance: ALBUMIN HUMAN
     Indication: Kidney transplant rejection
  3. GAMMAGARD LIQUID [Concomitant]
     Active Substance: HUMAN IMMUNOGLOBULIN G
     Route: 042
     Dates: start: 20250320, end: 20250320
  4. GAMMAGARD LIQUID [Concomitant]
     Active Substance: HUMAN IMMUNOGLOBULIN G
     Route: 042
     Dates: start: 20250320, end: 20250320
  5. GAMMAGARD LIQUID [Concomitant]
     Active Substance: HUMAN IMMUNOGLOBULIN G
     Route: 042
     Dates: start: 20250320, end: 20250320
  6. TYLENOL [Concomitant]
     Active Substance: ACETAMINOPHEN
  7. CETIRIZINE [Concomitant]
     Active Substance: CETIRIZINE HYDROCHLORIDE
  8. HYDROCORTISONE [Concomitant]
     Active Substance: HYDROCORTISONE

REACTIONS (8)
  - Transfusion-related circulatory overload [Recovered/Resolved with Sequelae]
  - Dyspnoea [Recovered/Resolved with Sequelae]
  - Pulmonary oedema [Recovered/Resolved with Sequelae]
  - Hypoxia [Recovered/Resolved with Sequelae]
  - Haemoglobin decreased [Recovered/Resolved with Sequelae]
  - Alpha haemolytic streptococcal infection [Recovered/Resolved with Sequelae]
  - False positive investigation result [Unknown]
  - Off label use [Unknown]

NARRATIVE: CASE EVENT DATE: 20250320
